FAERS Safety Report 6462605-6 (Version None)
Quarter: 2009Q4

REPORT INFORMATION
  Report Type: 
  Country: None (occurrence: None)
  Receive Date: 20091130
  Receipt Date: 20091012
  Transmission Date: 20100525
  Serious: No
  Sender: FDA-Public Use
  Company Number: US-AMGEN-KDL368819

PATIENT
  Sex: Male
  Weight: 77 kg

DRUGS (7)
  1. ENBREL [Suspect]
     Indication: DRUG USE FOR UNKNOWN INDICATION
     Route: 058
  2. UNSPECIFIED MEDICATION [Concomitant]
     Route: 048
  3. CRESTOR [Concomitant]
     Route: 048
  4. ASCORBIC ACID [Concomitant]
  5. FISH OIL [Concomitant]
     Route: 048
  6. MULTI-VITAMINS [Concomitant]
     Route: 048
  7. ASPIRIN [Concomitant]
     Route: 048

REACTIONS (1)
  - HEADACHE [None]
